FAERS Safety Report 8518089-7 (Version None)
Quarter: 2012Q3

REPORT INFORMATION
  Report Type: 
  Country: None (occurrence: None)
  Receive Date: 20120718
  Receipt Date: 20110928
  Transmission Date: 20120928
  Serious: Yes (Hospitalization)
  Sender: FDA-Public Use
  Company Number: US-BRISTOL-MYERS SQUIBB COMPANY-16062853

PATIENT
  Age: 35 Year
  Sex: Male
  Weight: 82 kg

DRUGS (1)
  1. COUMADIN [Suspect]
     Dates: start: 19981201

REACTIONS (2)
  - CEREBRAL HAEMORRHAGE [None]
  - TOXICITY TO VARIOUS AGENTS [None]
